FAERS Safety Report 7586949-X (Version None)
Quarter: 2011Q3

REPORT INFORMATION
  Report Type: 
  Country: None (occurrence: None)
  Receive Date: 20110701
  Receipt Date: 20110627
  Transmission Date: 20111222
  Serious: Yes (Hospitalization)
  Sender: FDA-Public Use
  Company Number: US-ABBOTT-10P-163-0678848-00

PATIENT
  Sex: Male
  Weight: 79.45 kg

DRUGS (13)
  1. NIASPAN [Suspect]
     Indication: LOW DENSITY LIPOPROTEIN INCREASED
  2. SIMVASTATIN [Concomitant]
     Indication: BLOOD CHOLESTEROL
  3. ATENOLOL [Concomitant]
     Indication: CARDIAC DISORDER
  4. HYDROCHLOROTHIAZIDE [Concomitant]
     Indication: FLUID RETENTION
  5. DORZOLAMIDE HYDROCHLORIDE [Concomitant]
     Indication: GLAUCOMA
  6. NIASPAN [Suspect]
     Indication: HIGH DENSITY LIPOPROTEIN DECREASED
     Dosage: 1000 MG AT BEDTIME
     Route: 048
  7. RANITIDINE [Concomitant]
     Indication: ANTACID THERAPY
  8. ASPIRIN [Concomitant]
     Indication: PRODUCT USED FOR UNKNOWN INDICATION
     Dosage: AT BEDTIME
     Route: 048
  9. NIASPAN [Suspect]
     Indication: HIGH DENSITY LIPOPROTEIN DECREASED
     Dosage: AT BEDTIME
     Route: 048
     Dates: start: 20100601
  10. PLAVIX [Concomitant]
     Indication: ANTICOAGULANT THERAPY
  11. ASMANEX TWISTHALER [Concomitant]
     Indication: CHRONIC OBSTRUCTIVE PULMONARY DISEASE
  12. DIDOXIN [Concomitant]
     Indication: ARRHYTHMIA
  13. NIASPAN [Suspect]
     Indication: LOW DENSITY LIPOPROTEIN INCREASED

REACTIONS (13)
  - PAIN IN JAW [None]
  - TETANUS [None]
  - JAW DISORDER [None]
  - HAEMATOCHEZIA [None]
  - RECTAL HAEMORRHAGE [None]
  - INFECTION [None]
  - FLUSHING [None]
  - TOOTH INFECTION [None]
  - PHARYNGEAL HAEMORRHAGE [None]
  - EPISTAXIS [None]
  - BONE GRAFT [None]
  - HAEMOPTYSIS [None]
  - MUSCLE SPASMS [None]
